FAERS Safety Report 13969913 (Version 2)
Quarter: 2017Q4

REPORT INFORMATION
  Report Type: Spontaneous
  Country: US (occurrence: US)
  Receive Date: 20170914
  Receipt Date: 20171117
  Transmission Date: 20180321
  Serious: Yes (Other)
  Sender: FDA-Public Use
  Company Number: US-PFIZER INC-2017394419

PATIENT
  Age: 80 Year
  Sex: Female
  Weight: 61.22 kg

DRUGS (1)
  1. TOBRAMYCIN. [Suspect]
     Active Substance: TOBRAMYCIN
     Dosage: UNK UNK, 2X/DAY
     Route: 045

REACTIONS (4)
  - Choking [Unknown]
  - Dyspnoea [Unknown]
  - Product use issue [Unknown]
  - Productive cough [Unknown]

NARRATIVE: CASE EVENT DATE: 20170815
